APPROVED DRUG PRODUCT: MELOXICAM
Active Ingredient: MELOXICAM
Strength: 15MG
Dosage Form/Route: TABLET;ORAL
Application: A077932 | Product #002 | TE Code: AB
Applicant: GLENMARK PHARMACEUTICALS LTD
Approved: Jul 19, 2006 | RLD: No | RS: No | Type: RX